FAERS Safety Report 18118226 (Version 1)
Quarter: 2020Q3

REPORT INFORMATION
  Report Type: Spontaneous
  Country: AU (occurrence: AU)
  Receive Date: 20200806
  Receipt Date: 20200806
  Transmission Date: 20201103
  Serious: Yes (Hospitalization)
  Sender: FDA-Public Use
  Company Number: AU-PFIZER INC-2020294654

PATIENT
  Age: 76 Year
  Sex: Male

DRUGS (3)
  1. DOTHIEPIN [DOSULEPIN HYDROCHLORIDE] [Concomitant]
     Dosage: UNK (THE DOSE HAVING BEEN RECENTLY DOUBLED)
  2. VENLAFAXINE HCL [Suspect]
     Active Substance: VENLAFAXINE HYDROCHLORIDE
     Dosage: UNK (THE DOSE HAVING BEEN RECENTLY DOUBLED)
  3. DONEPEZIL HCL [Interacting]
     Active Substance: DONEPEZIL HYDROCHLORIDE
     Indication: DEMENTIA ALZHEIMER^S TYPE
     Dosage: UNK (THE DOSE HAVING BEEN RECENTLY DOUBLED)

REACTIONS (7)
  - Unresponsive to stimuli [Recovered/Resolved]
  - Respiratory arrest [Recovered/Resolved]
  - Hypertension [Recovered/Resolved]
  - Cyanosis [Recovered/Resolved]
  - Heart rate abnormal [Recovered/Resolved]
  - Coma [Recovered/Resolved]
  - Drug interaction [Recovered/Resolved]
